FAERS Safety Report 14706849 (Version 1)
Quarter: 2018Q2

REPORT INFORMATION
  Report Type: Spontaneous
  Country: US (occurrence: US)
  Receive Date: 20180403
  Receipt Date: 20180403
  Transmission Date: 20180711
  Serious: Yes (Death, Other)
  Sender: FDA-Public Use
  Company Number: US-ALVOGEN-2018-ALVOGEN-095702

PATIENT
  Age: 82 Year
  Sex: Female
  Weight: 37.4 kg

DRUGS (14)
  1. IRESSA [Suspect]
     Active Substance: GEFITINIB
     Indication: TRACHEAL CANCER
     Route: 048
  2. OSIMERTINIB. [Suspect]
     Active Substance: OSIMERTINIB
     Indication: LUNG NEOPLASM MALIGNANT
     Route: 048
     Dates: start: 20160617
  3. OSIMERTINIB. [Suspect]
     Active Substance: OSIMERTINIB
     Indication: METASTASES TO CENTRAL NERVOUS SYSTEM
     Route: 048
     Dates: start: 20160617
  4. OSIMERTINIB. [Suspect]
     Active Substance: OSIMERTINIB
     Indication: TRACHEAL CANCER
     Route: 048
     Dates: start: 20160616
  5. LISINOPRIL. [Suspect]
     Active Substance: LISINOPRIL
     Indication: BLOOD PRESSURE ABNORMAL
     Dosage: DOSE AND FREQUENCY UNKNOWN
     Route: 048
  6. AMLODIPINE [Concomitant]
     Active Substance: AMLODIPINE BESYLATE
     Indication: BLOOD PRESSURE ABNORMAL
     Route: 048
  7. IRESSA [Suspect]
     Active Substance: GEFITINIB
     Indication: LUNG NEOPLASM MALIGNANT
     Route: 048
  8. OSIMERTINIB. [Suspect]
     Active Substance: OSIMERTINIB
     Indication: TRACHEAL CANCER
     Route: 048
     Dates: start: 20160617
  9. OXYCODONE [Concomitant]
     Active Substance: OXYCODONE
     Indication: PRODUCT USED FOR UNKNOWN INDICATION
     Dosage: 5/325 MG
     Route: 048
  10. OSIMERTINIB. [Suspect]
     Active Substance: OSIMERTINIB
     Indication: LUNG NEOPLASM MALIGNANT
     Route: 048
     Dates: start: 20160616
  11. TARCEVA [Concomitant]
     Active Substance: ERLOTINIB HYDROCHLORIDE
     Indication: TRACHEAL CANCER
  12. ACETAMINOPHEN. [Concomitant]
     Active Substance: ACETAMINOPHEN
     Indication: PRODUCT USED FOR UNKNOWN INDICATION
     Route: 048
  13. OSIMERTINIB. [Suspect]
     Active Substance: OSIMERTINIB
     Indication: METASTASES TO CENTRAL NERVOUS SYSTEM
     Route: 048
     Dates: start: 20160616
  14. ERLOTINIB [Concomitant]
     Active Substance: ERLOTINIB
     Indication: LUNG NEOPLASM MALIGNANT

REACTIONS (8)
  - Dry skin [Unknown]
  - Onychoclasis [Unknown]
  - Pleural effusion [Unknown]
  - Product use in unapproved indication [Unknown]
  - Asthenia [Unknown]
  - Death [Fatal]
  - Dyspnoea [Unknown]
  - Off label use [Unknown]

NARRATIVE: CASE EVENT DATE: 20160616
